FAERS Safety Report 10101131 (Version 1)
Quarter: 2014Q2

REPORT INFORMATION
  Report Type: Spontaneous
  Country: US (occurrence: US)
  Receive Date: 20140424
  Receipt Date: 20140424
  Transmission Date: 20141212
  Serious: Yes (Other)
  Sender: FDA-Public Use
  Company Number: US-BRISTOL-MYERS SQUIBB COMPANY-20636205

PATIENT
  Age: 20 Year
  Sex: Male
  Weight: 70.29 kg

DRUGS (2)
  1. ABILIFY TABS 15 MG [Suspect]
     Indication: BIPOLAR DISORDER
  2. LAMOTRIGINE [Concomitant]

REACTIONS (7)
  - Mania [Unknown]
  - Psychotic disorder [Unknown]
  - Malaise [Unknown]
  - Irritability [Unknown]
  - Wrong technique in drug usage process [Unknown]
  - Abnormal dreams [Unknown]
  - Aggression [Recovered/Resolved]
